FAERS Safety Report 6110697-6 (Version None)
Quarter: 2009Q1

REPORT INFORMATION
  Report Type: 
  Country: None (occurrence: None)
  Receive Date: 20090309
  Receipt Date: 20090226
  Transmission Date: 20090719
  Serious: Yes (Hospitalization)
  Sender: FDA-Public Use
  Company Number: 2009AL001138

PATIENT
  Age: 70 Year
  Sex: Female
  Weight: 53.978 kg

DRUGS (7)
  1. DIGOXIN [Suspect]
     Indication: CARDIAC DISORDER
     Dosage: 0.125MG, DAILY, PO
     Route: 048
     Dates: start: 20080101, end: 20090213
  2. PACERONE [Concomitant]
  3. FUROSEMIDE [Concomitant]
  4. FEMARA [Concomitant]
  5. INSULIN [Concomitant]
  6. CLONIDINE [Concomitant]
  7. LISINOPRIL [Concomitant]

REACTIONS (6)
  - ABASIA [None]
  - DIZZINESS [None]
  - FEELING ABNORMAL [None]
  - HEADACHE [None]
  - HYPERHIDROSIS [None]
  - NAUSEA [None]
